FAERS Safety Report 5923926-6 (Version None)
Quarter: 2008Q4

REPORT INFORMATION
  Report Type: 
  Country: None (occurrence: None)
  Receive Date: 20081015
  Receipt Date: 20081006
  Transmission Date: 20090506
  Serious: Yes (Hospitalization)
  Sender: FDA-Public Use
  Company Number: OSCN-NO-0211S-0222

PATIENT
  Age: 40 Year
  Sex: Male

DRUGS (5)
  1. OMNISCAN [Suspect]
     Indication: TINNITUS
     Dosage: SINGLE DOSE, I.V.
     Route: 042
     Dates: start: 20020620, end: 20020620
  2. VEPICOMBIN [Concomitant]
  3. VASTAREL [Concomitant]
  4. KLACID [Concomitant]
  5. ZITHROMAX [Concomitant]

REACTIONS (7)
  - CONSTIPATION [None]
  - ERECTILE DYSFUNCTION [None]
  - GENITAL PAIN [None]
  - HYPERHIDROSIS [None]
  - HYPOPHAGIA [None]
  - SENSORY DISTURBANCE [None]
  - TINNITUS [None]
